FAERS Safety Report 6685179-3 (Version None)
Quarter: 2010Q2

REPORT INFORMATION
  Report Type: 
  Country: None (occurrence: None)
  Receive Date: 20100416
  Receipt Date: 20100412
  Transmission Date: 20101027
  Serious: Yes (Hospitalization)
  Sender: FDA-Public Use
  Company Number: US-GILEAD-2010-0028368

PATIENT
  Sex: Male
  Weight: 89 kg

DRUGS (15)
  1. LETAIRIS [Suspect]
     Indication: PULMONARY ARTERIAL HYPERTENSION
     Route: 048
     Dates: start: 20091009
  2. FUROSEMIDE [Concomitant]
  3. METOPROLOL TARTRATE [Concomitant]
  4. NORVASC [Concomitant]
  5. COZAAR [Concomitant]
  6. ZOCOR [Concomitant]
  7. PREDNISONE [Concomitant]
  8. SPIRIVA [Concomitant]
  9. ADVAIR HFA [Concomitant]
  10. FLONASE [Concomitant]
  11. HUMALOG [Concomitant]
  12. HUMULIN R [Concomitant]
  13. LANTUS [Concomitant]
  14. MIRAPEX [Concomitant]
  15. CENTRUM SILVER [Concomitant]

REACTIONS (3)
  - COR PULMONALE [None]
  - DYSPNOEA [None]
  - OEDEMA PERIPHERAL [None]
